FAERS Safety Report 9568265 (Version 1)
Quarter: 2013Q3

REPORT INFORMATION
  Report Type: Spontaneous
  Country: US (occurrence: US)
  Receive Date: 20130930
  Receipt Date: 20130930
  Transmission Date: 20140515
  Serious: No
  Sender: FDA-Public Use
  Company Number: US-AMGEN-USASP2013052458

PATIENT
  Age: 34 Year
  Sex: Female
  Weight: 90.7 kg

DRUGS (6)
  1. ENBREL [Suspect]
     Indication: PRODUCT USED FOR UNKNOWN INDICATION
     Dosage: 50 MG, 2 TIMES/WK ON TUE AND FRI FOR 3 MONTHS THEN ONCE WEEKLY THEREAFTER.
     Route: 065
  2. LISINOPRIL [Concomitant]
     Dosage: 20 MG, UNK
     Route: 048
  3. WARFARIN [Concomitant]
     Dosage: 4 MG, UNK
     Route: 048
  4. VITAMIN D                          /00318501/ [Concomitant]
     Dosage: 1000 UNIT, UNK
     Route: 048
  5. CLOBETASOL [Concomitant]
     Dosage: 0.05 %, UNK
  6. DOVONEX [Concomitant]
     Dosage: 0.005 %, UNK

REACTIONS (2)
  - Psoriatic arthropathy [Unknown]
  - Drug effect decreased [Unknown]
